FAERS Safety Report 17834808 (Version 1)
Quarter: 2020Q2

REPORT INFORMATION
  Report Type: Spontaneous
  Country: CA (occurrence: CA)
  Receive Date: 20200528
  Receipt Date: 20200528
  Transmission Date: 20200714
  Serious: Yes (Other)
  Sender: FDA-Public Use
  Company Number: CA-TEVA-2020-CA-1240417

PATIENT
  Age: 58 Week

DRUGS (8)
  1. PHENOBARBITAL. [Concomitant]
     Active Substance: PHENOBARBITAL
  2. MIDAZOLAM. [Suspect]
     Active Substance: MIDAZOLAM
     Indication: PROPHYLAXIS
     Route: 065
  3. ISOFLURANE USP [Concomitant]
     Active Substance: ISOFLURANE
     Dosage: LIQUID INHALATION
  4. VALPROIC ACID. [Concomitant]
     Active Substance: VALPROIC ACID
  5. PROPOFOL. [Suspect]
     Active Substance: PROPOFOL
     Indication: PROPHYLAXIS
     Route: 065
  6. KETAMINE HYDROCHLORIDE. [Concomitant]
     Active Substance: KETAMINE HYDROCHLORIDE
  7. LEVETIRACETAM. [Concomitant]
     Active Substance: LEVETIRACETAM
  8. PHENYTOIN. [Concomitant]
     Active Substance: PHENYTOIN

REACTIONS (1)
  - Intestinal ischaemia [Unknown]
